FAERS Safety Report 4279875-5 (Version None)
Quarter: 2004Q1

REPORT INFORMATION
  Report Type: 
  Country: None (occurrence: None)
  Receive Date: 20040126
  Receipt Date: 20040115
  Transmission Date: 20041129
  Serious: Yes (Death, Life-Threatening)
  Sender: FDA-Public Use
  Company Number: GB-JNJFOC-20040102667

PATIENT
  Age: 58 Year
  Sex: Male

DRUGS (7)
  1. REMICADE [Suspect]
     Indication: RHEUMATOID ARTHRITIS
     Dosage: INTRAVENOUS
     Route: 042
     Dates: start: 20020702
  2. METHOTREXATE [Concomitant]
  3. FOLIC ACID [Concomitant]
  4. DICLOFENAC SODIUM [Concomitant]
  5. NIFEDIPINE [Concomitant]
  6. BENDROFLUAZIDE (BENDROFLUAZIDE) [Concomitant]
  7. PREDNISOLONE [Concomitant]

REACTIONS (1)
  - MYOCARDIAL INFARCTION [None]
